FAERS Safety Report 4710374-X (Version None)
Quarter: 2005Q3

REPORT INFORMATION
  Report Type: 
  Country: None (occurrence: None)
  Receive Date: 20050707
  Receipt Date: 20050623
  Transmission Date: 20060218
  Serious: Yes (Other)
  Sender: FDA-Public Use
  Company Number: 214069

PATIENT
  Sex: Female

DRUGS (2)
  1. MABTHERA (RITUXIMAB) CONC FOR SOLUTION FOR INFUSION [Suspect]
     Indication: LYMPHOMA
  2. FLUDARABINE PHOSPHATE [Suspect]
     Indication: LYMPHOMA

REACTIONS (2)
  - CYTOMEGALOVIRUS INFECTION [None]
  - EYE INFECTION TOXOPLASMAL [None]
